FAERS Safety Report 23618438 (Version 1)
Quarter: 2024Q1

REPORT INFORMATION
  Report Type: Spontaneous
  Country: FR (occurrence: FR)
  Receive Date: 20240311
  Receipt Date: 20240311
  Transmission Date: 20240409
  Serious: Yes (Hospitalization)
  Sender: FDA-Public Use
  Company Number: None

PATIENT
  Age: 13 Year
  Sex: Male

DRUGS (3)
  1. CYCLOPHOSPHAMIDE [Suspect]
     Active Substance: CYCLOPHOSPHAMIDE
     Indication: Staphylococcal infection
     Dosage: 25.000MG QD
     Route: 048
     Dates: start: 20231226, end: 20240108
  2. CLINDAMYCIN [Suspect]
     Active Substance: CLINDAMYCIN
     Indication: Staphylococcal infection
     Dosage: 450 MG X3/J
     Route: 048
     Dates: start: 20231220, end: 20240108
  3. SIROLIMUS [Suspect]
     Active Substance: SIROLIMUS
     Indication: Osteosarcoma
     Dosage: 2.000MG QD
     Route: 048
     Dates: start: 20231226, end: 20240108

REACTIONS (1)
  - Dyspepsia [Recovered/Resolved]

NARRATIVE: CASE EVENT DATE: 20240104
